FAERS Safety Report 17578092 (Version 1)
Quarter: 2020Q1

REPORT INFORMATION
  Report Type: Spontaneous
  Country: CA (occurrence: CA)
  Receive Date: 20200324
  Receipt Date: 20200324
  Transmission Date: 20200409
  Serious: Yes (Other)
  Sender: FDA-Public Use
  Company Number: NVSC2020CA078418

PATIENT
  Age: 53 Year
  Sex: Female

DRUGS (3)
  1. FENTANYL. [Suspect]
     Active Substance: FENTANYL
     Indication: BACK PAIN
     Dosage: 62.5 MG
     Route: 062
  2. SANDOSTATIN LAR DEPOT [Suspect]
     Active Substance: OCTREOTIDE ACETATE
     Indication: CARCINOID TUMOUR
     Dosage: 30 MG, QMO
     Route: 030
  3. OCTREOTIDE ACETATE. [Suspect]
     Active Substance: OCTREOTIDE ACETATE
     Indication: CARCINOID TUMOUR
     Dosage: UNK UNK, BID (2 EVERY 1 DAYS) (STRENGTH: 50 UG/ML)
     Route: 058

REACTIONS (8)
  - Coma [Unknown]
  - Urinary tract infection [Unknown]
  - Blood pressure increased [Unknown]
  - Abdominal pain [Unknown]
  - Product prescribing error [Unknown]
  - Dizziness [Unknown]
  - Injection site pain [Unknown]
  - Nausea [Unknown]
